FAERS Safety Report 15941154 (Version 2)
Quarter: 2019Q1

REPORT INFORMATION
  Report Type: Spontaneous
  Country: TW (occurrence: TW)
  Receive Date: 20190208
  Receipt Date: 20190215
  Transmission Date: 20190417
  Serious: Yes (Death, Other)
  Sender: FDA-Public Use
  Company Number: TW-TAKEDA-2019TUS004375

PATIENT

DRUGS (1)
  1. VELCADE [Suspect]
     Active Substance: BORTEZOMIB
     Indication: PLASMA CELL MYELOMA
     Dosage: UNK
     Route: 042

REACTIONS (7)
  - Plasma cell myeloma [Fatal]
  - Pyrexia [Fatal]
  - Lacunar infarction [Fatal]
  - Respiratory failure [Fatal]
  - Pneumonia [Fatal]
  - Acute myocardial infarction [Fatal]
  - Acute respiratory failure [Fatal]
